FAERS Safety Report 4426761-3 (Version None)
Quarter: 2004Q3

REPORT INFORMATION
  Report Type: 
  Country: None (occurrence: None)
  Receive Date: 20040816
  Receipt Date: 20040804
  Transmission Date: 20050211
  Serious: Yes (Hospitalization)
  Sender: FDA-Public Use
  Company Number: DE-ROCHE-376657

PATIENT
  Age: 70 Year

DRUGS (6)
  1. INTERFERON ALFA-2A [Suspect]
     Indication: DRUG USE FOR UNKNOWN INDICATION
     Route: 065
     Dates: end: 20040227
  2. CAPTOPRIL [Concomitant]
  3. SPIRONOLACTONE [Concomitant]
  4. CELEBREX [Concomitant]
  5. PALLADON [Concomitant]
  6. PANTOPRAZOLE SODIUM [Concomitant]
     Indication: PROPHYLAXIS

REACTIONS (1)
  - CYANOSIS [None]
